FAERS Safety Report 13815991 (Version 3)
Quarter: 2019Q2

REPORT INFORMATION
  Report Type: Spontaneous
  Country: US (occurrence: US)
  Receive Date: 20170731
  Receipt Date: 20190408
  Transmission Date: 20190711
  Serious: Yes (Other)
  Sender: FDA-Public Use
  Company Number: US-SA-2017SA008571

PATIENT
  Age: 67 Year
  Sex: Female

DRUGS (3)
  1. AMBIEN CR [Suspect]
     Active Substance: ZOLPIDEM TARTRATE
     Indication: INSOMNIA
     Dosage: 12.5 MG,HS
     Route: 048
  2. AMBIEN CR [Suspect]
     Active Substance: ZOLPIDEM TARTRATE
     Dosage: 5 MG, QD
     Route: 065
  3. SIMPLY SLEEP [Concomitant]
     Active Substance: DIPHENHYDRAMINE HYDROCHLORIDE
     Dosage: UNK
     Route: 065

REACTIONS (7)
  - Pain in extremity [Unknown]
  - Depression [Unknown]
  - Drug dependence [Unknown]
  - Bronchitis [Not Recovered/Not Resolved]
  - Sleep disorder [Unknown]
  - Therapeutic product effect variable [Unknown]
  - Inappropriate schedule of product administration [Unknown]
